FAERS Safety Report 19578531 (Version 1)
Quarter: 2021Q3

REPORT INFORMATION
  Report Type: Spontaneous
  Country: IR (occurrence: IR)
  Receive Date: 20210720
  Receipt Date: 20210720
  Transmission Date: 20211014
  Serious: Yes (Other)
  Sender: FDA-Public Use
  Company Number: IR-SA-2021SA234391

PATIENT
  Sex: Male
  Weight: 87 kg

DRUGS (1)
  1. OMNIC [Suspect]
     Active Substance: TAMSULOSIN HYDROCHLORIDE
     Indication: BENIGN PROSTATIC HYPERPLASIA
     Dosage: UNK UNK, ONCE DAILY
     Route: 048
     Dates: start: 20210626

REACTIONS (3)
  - Visual impairment [Not Recovered/Not Resolved]
  - Ejaculation disorder [Not Recovered/Not Resolved]
  - Angina pectoris [Unknown]

NARRATIVE: CASE EVENT DATE: 20210630
